FAERS Safety Report 6235401-2 (Version None)
Quarter: 2009Q2

REPORT INFORMATION
  Report Type: 
  Country: None (occurrence: None)
  Receive Date: 20090618
  Receipt Date: 20090312
  Transmission Date: 20091009
  Serious: No
  Sender: FDA-Public Use
  Company Number: US-ASTRAZENECA-2009UW01960

PATIENT
  Age: 78 Year
  Sex: Male
  Weight: 77.1 kg

DRUGS (6)
  1. ENTOCORT EC [Suspect]
     Indication: IRRITABLE BOWEL SYNDROME
     Route: 048
     Dates: start: 20070530
  2. ENTOCORT EC [Suspect]
     Route: 048
     Dates: start: 20070722
  3. ENTOCORT EC [Suspect]
     Route: 048
     Dates: start: 20070822, end: 20070915
  4. ENTOCORT EC [Suspect]
     Route: 048
     Dates: start: 20071001
  5. LEVATOL [Concomitant]
     Indication: HYPERTENSION
  6. ZETIA [Concomitant]
     Indication: BLOOD CHOLESTEROL INCREASED

REACTIONS (2)
  - MUSCLE SPASMS [None]
  - NASOPHARYNGITIS [None]
